FAERS Safety Report 13556709 (Version 1)
Quarter: 2017Q2

REPORT INFORMATION
  Report Type: Spontaneous
  Country: US (occurrence: US)
  Receive Date: 20170517
  Receipt Date: 20170517
  Transmission Date: 20170830
  Serious: No
  Sender: FDA-Public Use
  Company Number: US-SA-2017SA061111

PATIENT
  Age: 69 Year
  Sex: Male

DRUGS (2)
  1. SOLOSTAR [Suspect]
     Active Substance: DEVICE
     Indication: TYPE 2 DIABETES MELLITUS
     Dates: start: 20170316
  2. TOUJEO [Suspect]
     Active Substance: INSULIN GLARGINE
     Indication: TYPE 2 DIABETES MELLITUS
     Dosage: 76 UNITS IN THE MORNING AND 96 UNITS IN THE EVENING
     Route: 051
     Dates: start: 20170316

REACTIONS (2)
  - Drug administered in wrong device [Unknown]
  - Off label use [Unknown]

NARRATIVE: CASE EVENT DATE: 2017
